FAERS Safety Report 7321020-3 (Version None)
Quarter: 2011Q1

REPORT INFORMATION
  Report Type: 
  Country: None (occurrence: None)
  Receive Date: 20110228
  Receipt Date: 20110215
  Transmission Date: 20110831
  Serious: Yes (Other)
  Sender: FDA-Public Use
  Company Number: DE-ROCHE-762044

PATIENT
  Sex: Male

DRUGS (1)
  1. ROACTEMRA [Suspect]
     Dosage: 5 CYCLES ALREADY GIVEN
     Route: 042

REACTIONS (2)
  - EOSINOPHILIA [None]
  - ECZEMA [None]
